FAERS Safety Report 9296107 (Version 1)
Quarter: 2013Q2

REPORT INFORMATION
  Report Type: Spontaneous
  Country: BE (occurrence: BE)
  Receive Date: 20130517
  Receipt Date: 20130517
  Transmission Date: 20140414
  Serious: Yes (Other)
  Sender: FDA-Public Use
  Company Number: BE-ASTRAZENECA-2013SE32360

PATIENT
  Age: 86 Year
  Sex: Female

DRUGS (2)
  1. ARIMIDEX [Suspect]
     Indication: BREAST MASS
     Route: 048
     Dates: start: 2008
  2. ARIMIDEX [Suspect]
     Indication: METASTASIS
     Route: 048
     Dates: start: 2008

REACTIONS (1)
  - Arthropathy [Unknown]
